FAERS Safety Report 17571309 (Version 1)
Quarter: 2020Q1

REPORT INFORMATION
  Report Type: Spontaneous
  Country: US (occurrence: US)
  Receive Date: 20200317
  Receipt Date: 20200317
  Transmission Date: 20200409
  Serious: No
  Sender: FDA-Public Use
  Company Number: None

PATIENT

DRUGS (2)
  1. BOTOX [Suspect]
     Active Substance: ONABOTULINUMTOXINA
     Indication: PARAPLEGIA
     Dosage: ?          OTHER DOSE:600 UNITS;OTHER FREQUENCY:OTHER;?
     Route: 058
     Dates: start: 202003
  2. BOTOX [Suspect]
     Active Substance: ONABOTULINUMTOXINA
     Indication: MUSCLE SPASTICITY
     Dosage: ?          OTHER DOSE:600 UNITS;OTHER FREQUENCY:OTHER;?
     Route: 058
     Dates: start: 202003

REACTIONS (1)
  - Product use issue [None]

NARRATIVE: CASE EVENT DATE: 20200317
